FAERS Safety Report 9346266 (Version 1)
Quarter: 2013Q2

REPORT INFORMATION
  Report Type: Spontaneous
  Country: CA (occurrence: CA)
  Receive Date: 20130613
  Receipt Date: 20130613
  Transmission Date: 20140414
  Serious: Yes (Death)
  Sender: FDA-Public Use
  Company Number: CA-AMGEN-CANSP2013040912

PATIENT
  Age: 70 Year
  Sex: Female

DRUGS (9)
  1. PROLIA [Suspect]
     Indication: PRODUCT USED FOR UNKNOWN INDICATION
     Dosage: UNK
     Route: 058
  2. ALTACE [Concomitant]
     Route: 048
  3. FLOVENT [Concomitant]
  4. GLUCOBAY [Concomitant]
     Route: 048
  5. JANUVIA [Concomitant]
     Route: 048
  6. LIPITOR [Concomitant]
     Route: 048
  7. NORVASC [Concomitant]
     Route: 048
  8. SPIRIVA [Concomitant]
     Route: 048
  9. SYNTHROID [Concomitant]

REACTIONS (3)
  - Pneumonia [Fatal]
  - Respiratory failure [Fatal]
  - Sepsis [Fatal]
